FAERS Safety Report 14961862 (Version 1)
Quarter: 2018Q2

REPORT INFORMATION
  Report Type: Spontaneous
  Country: PT (occurrence: PT)
  Receive Date: 20180601
  Receipt Date: 20180601
  Transmission Date: 20180711
  Serious: Yes (Life-Threatening, Hospitalization, Other)
  Sender: FDA-Public Use
  Company Number: PT-MACLEODS PHARMACEUTICALS US LTD-MAC2018013979

PATIENT

DRUGS (8)
  1. DIAZEPAM. [Suspect]
     Active Substance: DIAZEPAM
     Indication: ANTIDEPRESSANT THERAPY
     Dosage: UNK
     Route: 065
  2. VENLAFAXINE [Suspect]
     Active Substance: VENLAFAXINE HYDROCHLORIDE
     Indication: ANTIDEPRESSANT THERAPY
     Dosage: UNK
     Route: 065
  3. LORAZEPAM. [Suspect]
     Active Substance: LORAZEPAM
     Indication: ANTIDEPRESSANT THERAPY
     Dosage: UNK
     Route: 065
  4. CLOMIPRAMINE [Suspect]
     Active Substance: CLOMIPRAMINE
     Indication: ANTIDEPRESSANT THERAPY
     Dosage: UNK
     Route: 065
  5. VALPROIC ACID. [Concomitant]
     Active Substance: VALPROIC ACID
     Indication: PRODUCT USED FOR UNKNOWN INDICATION
     Dosage: UNK
     Route: 065
  6. DULOXETINE. [Suspect]
     Active Substance: DULOXETINE
     Indication: ANTIDEPRESSANT THERAPY
     Dosage: UNK
     Route: 065
  7. BROMAZEPAM [Suspect]
     Active Substance: BROMAZEPAM
     Indication: ANTIDEPRESSANT THERAPY
     Dosage: UNK
     Route: 065
  8. TRIHEXYPHENIDYL [Concomitant]
     Active Substance: TRIHEXYPHENIDYL
     Indication: PRODUCT USED FOR UNKNOWN INDICATION
     Dosage: UNK
     Route: 065

REACTIONS (7)
  - Hyperchloraemia [Unknown]
  - Overdose [Unknown]
  - Drug screen false positive [Unknown]
  - Coma [Unknown]
  - Hypernatraemia [Unknown]
  - Respiratory depression [Unknown]
  - Acute kidney injury [Unknown]
